FAERS Safety Report 7584202-1 (Version None)
Quarter: 2011Q2

REPORT INFORMATION
  Report Type: 
  Country: None (occurrence: None)
  Receive Date: 20110630
  Receipt Date: 20110627
  Transmission Date: 20111010
  Serious: Yes (Hospitalization, Other)
  Sender: FDA-Public Use
  Company Number: CA-ABBOTT-11P-028-0834521-00

PATIENT
  Sex: Male
  Weight: 81.72 kg

DRUGS (5)
  1. ARAVA [Concomitant]
     Indication: RHEUMATOID ARTHRITIS
     Dates: start: 20090101
  2. HUMIRA [Suspect]
     Indication: RHEUMATOID ARTHRITIS
     Route: 058
     Dates: start: 20090807, end: 20110501
  3. CELEXA [Concomitant]
     Indication: DEPRESSION
     Dates: start: 20090101
  4. NEXIUM [Concomitant]
     Indication: DYSPEPSIA
  5. FLOMAX [Concomitant]
     Indication: URINE FLOW DECREASED

REACTIONS (2)
  - FATIGUE [None]
  - MYOCARDIAL INFARCTION [None]
